FAERS Safety Report 16276877 (Version 1)
Quarter: 2019Q2

REPORT INFORMATION
  Report Type: Spontaneous
  Country: US (occurrence: US)
  Receive Date: 20190401
  Receipt Date: 20190401
  Transmission Date: 20190711
  Serious: Yes (Other)
  Sender: FDA-Public Use
  Company Number: None

PATIENT
  Age: 86 Year
  Sex: Female
  Weight: 61.23 kg

DRUGS (9)
  1. WARFARIN [Concomitant]
     Active Substance: WARFARIN
  2. AMLODIPINE [Concomitant]
     Active Substance: AMLODIPINE BESYLATE
  3. LOSARTAN. [Suspect]
     Active Substance: LOSARTAN
     Indication: HYPERTENSION
     Dosage: ?          QUANTITY:35 PILLS;?
     Route: 048
  4. LATANOPROST OPTH [Concomitant]
  5. VITAMIN E [Concomitant]
     Active Substance: .ALPHA.-TOCOPHEROL
  6. MULTI-VITAMINS [Concomitant]
  7. CALCIUM-MAGNESIUM ZINC [Concomitant]
  8. VITAMIN C [Concomitant]
     Active Substance: ASCORBIC ACID
  9. LOVASTATIN. [Concomitant]
     Active Substance: LOVASTATIN

REACTIONS (10)
  - Balance disorder [None]
  - Facial pain [None]
  - Deafness [None]
  - Headache [None]
  - Eye pain [None]
  - Product contamination [None]
  - Poor quality product administered [None]
  - Product quality issue [None]
  - Hypoacusis [None]
  - Bone pain [None]

NARRATIVE: CASE EVENT DATE: 20190102
